FAERS Safety Report 6374391-9 (Version None)
Quarter: 2009Q3

REPORT INFORMATION
  Report Type: 
  Country: None (occurrence: None)
  Receive Date: 20090921
  Receipt Date: 20090921
  Transmission Date: 20100115
  Serious: Yes (Other)
  Sender: FDA-Public Use
  Company Number: None

PATIENT
  Sex: Male

DRUGS (2)
  1. PRILOSEC [Suspect]
     Indication: GASTROOESOPHAGEAL REFLUX DISEASE
     Dosage: 20MG ONE PO BID
     Route: 048
     Dates: start: 19980101, end: 20040101
  2. PANTOPRAZOLE SODIUM [Suspect]
     Indication: GASTROOESOPHAGEAL REFLUX DISEASE
     Dosage: 40MG ONE PO QAM
     Route: 048
     Dates: start: 20080101, end: 20080201

REACTIONS (3)
  - DRUG EFFECT DECREASED [None]
  - DRUG INEFFECTIVE [None]
  - PRODUCT SUBSTITUTION ISSUE [None]
